FAERS Safety Report 6886271-0 (Version None)
Quarter: 2010Q3

REPORT INFORMATION
  Report Type: 
  Country: None (occurrence: None)
  Receive Date: 20100729
  Receipt Date: 20080805
  Transmission Date: 20110219
  Serious: No
  Sender: FDA-Public Use
  Company Number: US-PFIZER INC-2008065090

PATIENT
  Sex: Male
  Weight: 114.5 kg

DRUGS (4)
  1. CELEBREX [Suspect]
     Indication: ARTHRITIS
     Dates: start: 20080701
  2. CELEBREX [Suspect]
     Indication: BACK PAIN
  3. NORCO [Concomitant]
     Dates: end: 20080701
  4. HYDROCODONE BITARTRATE [Concomitant]

REACTIONS (1)
  - INSOMNIA [None]
